FAERS Safety Report 14683870 (Version 1)
Quarter: 2018Q1

REPORT INFORMATION
  Report Type: Spontaneous
  Country: US (occurrence: US)
  Receive Date: 20180327
  Receipt Date: 20180327
  Transmission Date: 20180509
  Serious: No
  Sender: FDA-Public Use
  Company Number: US-PFIZER INC-2018126185

PATIENT
  Age: 50 Year
  Sex: Female
  Weight: 79.83 kg

DRUGS (2)
  1. ADVIL SINUS CONGESTION AND PAIN [Suspect]
     Active Substance: IBUPROFEN\PHENYLEPHRINE HYDROCHLORIDE
     Indication: PAIN
  2. ADVIL SINUS CONGESTION AND PAIN [Suspect]
     Active Substance: IBUPROFEN\PHENYLEPHRINE HYDROCHLORIDE
     Indication: SINUS CONGESTION
     Dosage: 1 TABLET EVERY 4 HOURS (TOOK A TOTAL OF 3 DOSES)
     Route: 048
     Dates: start: 20180317, end: 20180318

REACTIONS (1)
  - Drug ineffective [Unknown]
